FAERS Safety Report 14460069 (Version 1)
Quarter: 2018Q1

REPORT INFORMATION
  Report Type: Spontaneous
  Country: DE (occurrence: DE)
  Receive Date: 20180130
  Receipt Date: 20180130
  Transmission Date: 20180509
  Serious: Yes (Other)
  Sender: FDA-Public Use
  Company Number: DE-BAYER-2018-013349

PATIENT
  Sex: Male

DRUGS (3)
  1. TIAPRIDE [Concomitant]
     Active Substance: TIAPRIDE
  2. IRON TABLETS [Concomitant]
  3. ASPIRIN PROTECT 100 MG [Suspect]
     Active Substance: ASPIRIN
     Indication: CEREBROVASCULAR ACCIDENT
     Dosage: UNK
     Dates: start: 2016

REACTIONS (5)
  - Confusional state [None]
  - Diarrhoea [None]
  - Muscle atrophy [None]
  - Syncope [None]
  - Iron deficiency anaemia [None]
